FAERS Safety Report 6517278-0 (Version None)
Quarter: 2009Q4

REPORT INFORMATION
  Report Type: 
  Country: None (occurrence: None)
  Receive Date: 20091218
  Receipt Date: 20091203
  Transmission Date: 20100525
  Serious: Yes (Hospitalization)
  Sender: FDA-Public Use
  Company Number: 8054592

PATIENT
  Sex: Female
  Weight: 55 kg

DRUGS (19)
  1. CERTOLIZUMAB PEGOL [Suspect]
     Indication: RHEUMATOID ARTHRITIS
     Dosage: (400 MG 1X/2 WEEKS SUBCUTANEOUS)
     Route: 058
     Dates: start: 20091012
  2. METHOTREXATE [Concomitant]
  3. PREDNISONE [Concomitant]
  4. NAPROSYN [Concomitant]
  5. PLAQUENIL [Concomitant]
  6. FOLIC ACID [Concomitant]
  7. DIFLUCAN [Concomitant]
  8. DARVOCET-N 100 [Concomitant]
  9. PROAIR HFA [Concomitant]
  10. ADVAIR DISKUS 100/50 [Concomitant]
  11. VITAMIN C /00008001/ [Concomitant]
  12. VITAMIN A [Concomitant]
  13. FLONASE [Concomitant]
  14. ALENDRONATE SODIUM [Concomitant]
  15. TRAVATAN [Concomitant]
  16. ATROVENT [Concomitant]
  17. ALBUTEROL [Concomitant]
  18. HEPARIN [Concomitant]
  19. INFLUENZA VACCINE [Concomitant]

REACTIONS (15)
  - BALANCE DISORDER [None]
  - BLOOD CULTURE POSITIVE [None]
  - CHILLS [None]
  - ESCHERICHIA INFECTION [None]
  - FATIGUE [None]
  - HEADACHE [None]
  - HYPOPHAGIA [None]
  - NAUSEA [None]
  - NEUTROPHIL PERCENTAGE INCREASED [None]
  - NIGHT SWEATS [None]
  - PAIN [None]
  - PYELONEPHRITIS [None]
  - PYREXIA [None]
  - TACHYCARDIA [None]
  - WHITE BLOOD CELL COUNT INCREASED [None]
